FAERS Safety Report 7768471-0 (Version None)
Quarter: 2011Q3

REPORT INFORMATION
  Report Type: 
  Country: None (occurrence: None)
  Receive Date: 20110922
  Receipt Date: 20100827
  Transmission Date: 20111222
  Serious: No
  Sender: FDA-Public Use
  Company Number: US-ASTRAZENECA-2008UW16208

PATIENT
  Age: 456 Month
  Sex: Female
  Weight: 91.2 kg

DRUGS (6)
  1. SEROQUEL [Suspect]
     Indication: BIPOLAR DISORDER
     Dosage: 200MG TO 400MG
     Route: 048
     Dates: start: 19990101, end: 20100301
  2. SEROQUEL [Suspect]
     Indication: DEPRESSION
     Dosage: 200MG TO 400MG
     Route: 048
     Dates: start: 19990101, end: 20100301
  3. SEROQUEL [Suspect]
     Indication: SCHIZOPHRENIA
     Dosage: 200MG TO 400MG
     Route: 048
     Dates: start: 19990101, end: 20100301
  4. HALDOL [Concomitant]
     Dates: start: 19800101
  5. SEROQUEL [Suspect]
     Indication: ANXIETY
     Dosage: 200MG TO 400MG
     Route: 048
     Dates: start: 19990101, end: 20100301
  6. THORAZINE [Concomitant]
     Dates: start: 19900101

REACTIONS (9)
  - DYSPNOEA [None]
  - TYPE 2 DIABETES MELLITUS [None]
  - CHEST PAIN [None]
  - BLOOD CHOLESTEROL INCREASED [None]
  - DIABETIC COMPLICATION [None]
  - PAIN IN EXTREMITY [None]
  - HYPERLIPIDAEMIA [None]
  - ABDOMINAL PAIN UPPER [None]
  - OBESITY [None]
